FAERS Safety Report 14568010 (Version 1)
Quarter: 2018Q1

REPORT INFORMATION
  Report Type: Report from Study
  Country: ES (occurrence: ES)
  Receive Date: 20180223
  Receipt Date: 20180223
  Transmission Date: 20180509
  Serious: Yes (Life-Threatening, Hospitalization)
  Sender: FDA-Public Use
  Company Number: ES-TEVA-2018-ES-859134

PATIENT
  Age: 69 Year
  Sex: Male

DRUGS (2)
  1. FLUOXETINA [Suspect]
     Active Substance: FLUOXETINE HYDROCHLORIDE
     Route: 048
     Dates: start: 20130728
  2. ALDOCUMAR 1 MG COMPRIMIDOS, 40 COMPRIMIDOS [Interacting]
     Active Substance: WARFARIN SODIUM
     Indication: CEREBROVASCULAR ACCIDENT
     Route: 048
     Dates: start: 201308

REACTIONS (2)
  - Haematuria [Recovered/Resolved]
  - Drug interaction [Recovered/Resolved]

NARRATIVE: CASE EVENT DATE: 20160710
